FAERS Safety Report 9321374 (Version 4)
Quarter: 2013Q3

REPORT INFORMATION
  Report Type: Spontaneous
  Country: DK (occurrence: JP)
  Receive Date: 20130531
  Receipt Date: 20130814
  Transmission Date: 20140515
  Serious: Yes (Hospitalization)
  Sender: FDA-Public Use
  Company Number: JP-FRI-1000045519

PATIENT
  Age: 25 Year
  Sex: Male

DRUGS (6)
  1. LEXAPRO [Suspect]
     Indication: DEPRESSION
     Dosage: 10 MG
     Route: 048
     Dates: start: 20120302, end: 20120927
  2. LEXAPRO [Interacting]
     Indication: DEPRESSION
     Dosage: 20 MG
     Route: 048
     Dates: start: 20120928, end: 20130506
  3. ANAFRANIL [Interacting]
     Indication: DEPRESSION
     Dosage: 20 MG
     Route: 048
     Dates: start: 20121111, end: 20130120
  4. ANAFRANIL [Interacting]
     Indication: DEPRESSION
     Dosage: 50 MG
     Route: 048
     Dates: start: 20130121, end: 20130506
  5. ALCOHOL [Interacting]
  6. ROHYPNOL [Interacting]
     Indication: INSOMNIA
     Dosage: 2 MG
     Route: 048
     Dates: end: 20130506

REACTIONS (4)
  - Serotonin syndrome [Recovered/Resolved]
  - Suicide attempt [Recovered/Resolved]
  - Rhabdomyolysis [Recovered/Resolved]
  - Drug interaction [Recovered/Resolved]
